FAERS Safety Report 25944707 (Version 1)
Quarter: 2025Q4

REPORT INFORMATION
  Report Type: Spontaneous
  Country: US (occurrence: None)
  Receive Date: 20251021
  Receipt Date: 20251021
  Transmission Date: 20260118
  Serious: Yes (Hospitalization)
  Sender: FDA-CTU
  Company Number: None

PATIENT
  Sex: Female

DRUGS (2)
  1. PROCRIT [Suspect]
     Active Substance: ERYTHROPOIETIN
     Indication: Anaemia of chronic disease
     Dosage: OTHER FREQUENCY : EVERY 30 DAYS;?
     Route: 058
     Dates: start: 20250122
  2. PROCRIT [Suspect]
     Active Substance: ERYTHROPOIETIN
     Indication: Nephrogenic anaemia

REACTIONS (1)
  - Urinary tract infection [None]
